FAERS Safety Report 9378929 (Version 2)
Quarter: 2013Q3

REPORT INFORMATION
  Report Type: Spontaneous
  Country: US (occurrence: US)
  Receive Date: 20130702
  Receipt Date: 20130806
  Transmission Date: 20140515
  Serious: No
  Sender: FDA-Public Use
  Company Number: US-PFIZER INC-2013193292

PATIENT
  Age: 52 Year
  Sex: Male
  Weight: 86.17 kg

DRUGS (5)
  1. LYRICA [Suspect]
     Indication: FIBROMYALGIA
     Dosage: 75 MG, 1X/DAY
     Route: 048
  2. LISINOPRIL [Concomitant]
     Dosage: UNK
  3. LOVASTATIN [Concomitant]
     Dosage: UNK
  4. FLOMAX [Concomitant]
     Dosage: UNK
  5. PLAVIX [Concomitant]
     Dosage: UNK

REACTIONS (2)
  - Bronchitis [Recovering/Resolving]
  - Cough [Recovering/Resolving]
